FAERS Safety Report 6976136-8 (Version None)
Quarter: 2010Q3

REPORT INFORMATION
  Report Type: 
  Country: None (occurrence: None)
  Receive Date: 20100910
  Receipt Date: 20100830
  Transmission Date: 20110219
  Serious: Yes (Hospitalization)
  Sender: FDA-Public Use
  Company Number: US-SANOFI-AVENTIS-2010SA052882

PATIENT
  Age: 71 Year
  Sex: Male

DRUGS (14)
  1. LOVENOX [Suspect]
     Indication: DEEP VEIN THROMBOSIS
     Route: 058
     Dates: start: 20100804
  2. INVESTIGATIONAL DRUG [Suspect]
     Indication: NEOPLASM
     Route: 065
     Dates: start: 20100810
  3. IMODIUM [Concomitant]
     Dates: start: 20100810
  4. KYTRIL [Concomitant]
     Dates: start: 20100810, end: 20100811
  5. MAGNESIUM OXIDE [Concomitant]
     Dates: start: 20100809
  6. DARVOCET-N 100 [Concomitant]
     Dates: start: 20100301
  7. FLOMAX [Concomitant]
     Dates: start: 20071001
  8. FOLIC ACID [Concomitant]
     Dates: start: 20100301
  9. METOPROLOL TARTRATE [Concomitant]
     Dates: start: 20090101
  10. TYLENOL [Concomitant]
     Dates: start: 20090101
  11. XANAX [Concomitant]
     Dates: start: 20090101
  12. COMPAZINE [Concomitant]
     Dates: start: 20100101
  13. OXYGEN [Concomitant]
  14. NAPROSYN [Concomitant]
     Dates: start: 20100101

REACTIONS (7)
  - ANAEMIA [None]
  - ASTHENIA [None]
  - CONFUSIONAL STATE [None]
  - DYSPNOEA [None]
  - LETHARGY [None]
  - OCCULT BLOOD POSITIVE [None]
  - VISION BLURRED [None]
